FAERS Safety Report 9318430 (Version 1)
Quarter: 2013Q2

REPORT INFORMATION
  Report Type: Spontaneous
  Country: US (occurrence: US)
  Receive Date: 20130530
  Receipt Date: 20130530
  Transmission Date: 20140414
  Serious: No
  Sender: FDA-Public Use
  Company Number: US-NOVEN-13US006460

PATIENT
  Age: 8 Year
  Sex: Male

DRUGS (3)
  1. DAYTRANA [Suspect]
     Indication: ATTENTION DEFICIT/HYPERACTIVITY DISORDER
     Dosage: 20 MG, UNK
     Dates: start: 201303
  2. DAYTRANA [Suspect]
     Dosage: 15 MG, UNK
     Route: 062
     Dates: start: 201302, end: 201303
  3. DAYTRANA [Suspect]
     Dosage: 20 MG, UNK
     Route: 062
     Dates: start: 201212, end: 201302

REACTIONS (6)
  - Application site rash [Not Recovered/Not Resolved]
  - Application site erythema [Not Recovered/Not Resolved]
  - Application site bruise [Not Recovered/Not Resolved]
  - Application site irritation [Not Recovered/Not Resolved]
  - Application site pain [Not Recovered/Not Resolved]
  - Product quality issue [Recovered/Resolved]
